FAERS Safety Report 9559492 (Version 1)
Quarter: 2013Q3

REPORT INFORMATION
  Report Type: Spontaneous
  Country: US (occurrence: None)
  Receive Date: 20130924
  Receipt Date: 20130924
  Transmission Date: 20140515
  Serious: Yes (Hospitalization)
  Sender: FDA-Public Use
  Company Number: FK201304343

PATIENT
  Age: 35 Year
  Sex: Male

DRUGS (4)
  1. FLUOROURACIL [Suspect]
     Indication: RECTAL CANCER STAGE III
     Dosage: PER 24 HOURS
  2. CAPECITABINE [Suspect]
     Indication: RECTAL CANCER STAGE III
     Dosage: PER 24 HOURS
  3. OXALIPLATIN(OXALIPLATIN) (INJECTION)(OXALIPLATIN) [Concomitant]
  4. LEUCOVORIN (CALCIUM FOLINATE) [Concomitant]

REACTIONS (1)
  - Cardiotoxicity [None]
